FAERS Safety Report 5350703-X (Version None)
Quarter: 2007Q2

REPORT INFORMATION
  Report Type: 
  Country: None (occurrence: None)
  Receive Date: 20070606
  Receipt Date: 20070606
  Transmission Date: 20071010
  Serious: Yes (Life-Threatening)
  Sender: FDA-Public Use
  Company Number: None

PATIENT
  Age: 61 Year
  Sex: Male
  Weight: 83.9154 kg

DRUGS (1)
  1. TESTIM [Suspect]
     Indication: LIBIDO DISORDER
     Dosage: 1 TUBE 1 A DAY TOP
     Route: 061
     Dates: start: 20050318, end: 20070416

REACTIONS (1)
  - PROSTATE CANCER [None]
